FAERS Safety Report 6788834-X (Version None)
Quarter: 2010Q2

REPORT INFORMATION
  Report Type: 
  Country: None (occurrence: None)
  Receive Date: 20100623
  Receipt Date: 20080527
  Transmission Date: 20101027
  Serious: Yes (Other)
  Sender: FDA-Public Use
  Company Number: US-PFIZER INC-2008031127

PATIENT
  Sex: Female

DRUGS (17)
  1. SUTENT [Suspect]
     Indication: RENAL CANCER METASTATIC
     Dosage: DAILY: EVERY DAY
     Dates: start: 20070501, end: 20080301
  2. BUMETANIDE [Concomitant]
  3. CARVEDILOL [Concomitant]
  4. COLACE [Concomitant]
  5. GLIPIZIDE [Concomitant]
  6. IMDUR [Concomitant]
  7. LEVOTHYROXINE SODIUM [Concomitant]
  8. MEGACE [Concomitant]
  9. PRILOSEC [Concomitant]
  10. MIRALAX [Concomitant]
  11. SENOKOT [Concomitant]
  12. ALL OTHER THERAPEUTIC PRODUCTS [Concomitant]
  13. VALTREX [Concomitant]
  14. ZINC [Concomitant]
  15. SYMBICORT [Concomitant]
  16. BUDESONIDE [Concomitant]
  17. FORMOTEROL [Concomitant]

REACTIONS (1)
  - CARDIAC FAILURE CONGESTIVE [None]
